FAERS Safety Report 14326625 (Version 1)
Quarter: 2017Q4

REPORT INFORMATION
  Report Type: Spontaneous
  Country: US (occurrence: US)
  Receive Date: 20171226
  Receipt Date: 20171226
  Transmission Date: 20180321
  Serious: Yes (Other)
  Sender: FDA-Public Use
  Company Number: None

PATIENT
  Age: 61 Year
  Sex: Female
  Weight: 80.1 kg

DRUGS (10)
  1. SIMVISTATIN [Concomitant]
     Active Substance: SIMVASTATIN
  2. MULTIVITAMIN [Concomitant]
     Active Substance: VITAMINS
  3. NITROFURANTOIN MONOHYD MACRO [Suspect]
     Active Substance: NITROFURANTOIN\NITROFURANTOIN MONOHYDRATE
     Indication: URINARY TRACT INFECTION
     Dosage: ?          QUANTITY:20 CAPSULE(S);?
     Route: 048
     Dates: start: 20171211, end: 20171211
  4. BABY ASPIRIN [Concomitant]
     Active Substance: ASPIRIN
  5. VITAMIN C [Concomitant]
     Active Substance: ASCORBIC ACID
  6. XANAX [Concomitant]
     Active Substance: ALPRAZOLAM
  7. PROBIOTIC [Concomitant]
     Active Substance: PROBIOTICS NOS
  8. LOSARTEN [Suspect]
     Active Substance: LOSARTAN
  9. METOPROLOL. [Concomitant]
     Active Substance: METOPROLOL
  10. KRILL OIL [Concomitant]
     Active Substance: DIETARY SUPPLEMENT

REACTIONS (2)
  - Chills [None]
  - Headache [None]

NARRATIVE: CASE EVENT DATE: 20171212
